FAERS Safety Report 7369164-4 (Version None)
Quarter: 2011Q1

REPORT INFORMATION
  Report Type: 
  Country: None (occurrence: None)
  Receive Date: 20110323
  Receipt Date: 20110318
  Transmission Date: 20110831
  Serious: No
  Sender: FDA-Public Use
  Company Number: US-PFIZER INC-2011060519

PATIENT
  Sex: Female
  Weight: 60.3 kg

DRUGS (11)
  1. NEXIUM [Concomitant]
     Dosage: 40 MG, 1X/DAY
  2. MULTI-VITAMINS [Concomitant]
     Dosage: UNK, 1X/DAY
  3. NORCO [Concomitant]
     Dosage: 10/325MG FOUR TIMES A DAY AS NEEDED
  4. FIORICET [Concomitant]
     Dosage: 50/325/40MG TWO TIMES A DAY AS NEEDED
  5. SOMA [Concomitant]
     Dosage: UNK, 3X/DAY
  6. TRAMADOL [Concomitant]
     Dosage: 50MG TWO TIMES A DAY AS NEEDED
  7. LYRICA [Suspect]
     Indication: FIBROMYALGIA
     Dosage: 75 MG, 2X/DAY
     Route: 048
     Dates: start: 20110310
  8. LEXAPRO [Concomitant]
     Dosage: 20 MG, 1X/DAY
  9. MOTRIN [Concomitant]
     Dosage: 800MG THREE TIMES A DAY AS NEEDED
  10. KLONOPIN [Concomitant]
     Dosage: 0.5MG THREE TIMES A DAY AS NEEDED
  11. CALCIUM WITH VITAMIN D [Concomitant]
     Dosage: UNK, 1X/DAY

REACTIONS (7)
  - CONFUSIONAL STATE [None]
  - ABDOMINAL PAIN [None]
  - HEADACHE [None]
  - NAUSEA [None]
  - DIZZINESS [None]
  - ABDOMINAL DISCOMFORT [None]
  - DIARRHOEA [None]
